FAERS Safety Report 9456148 (Version 1)
Quarter: 2013Q3

REPORT INFORMATION
  Report Type: Spontaneous
  Country: US (occurrence: None)
  Receive Date: 20130812
  Receipt Date: 20130812
  Transmission Date: 20140515
  Serious: Yes (Death, Life-Threatening, Hospitalization)
  Sender: FDA-Public Use
  Company Number: None

PATIENT
  Age: 69 Year
  Sex: Male
  Weight: 66.8 kg

DRUGS (3)
  1. AMIODARONE [Suspect]
     Indication: VENTRICULAR TACHYCARDIA
     Dosage: 400 MG  EVERY DAY PO
     Route: 048
     Dates: start: 20120221, end: 20130425
  2. AMIODARONE [Suspect]
     Indication: IMPLANTABLE DEFIBRILLATOR INSERTION
     Dosage: 400 MG  EVERY DAY PO
     Route: 048
     Dates: start: 20120221, end: 20130425
  3. ROSUVASTATIN [Suspect]
     Indication: HYPERLIPIDAEMIA
     Dosage: 5 MG AT BEDTIME PO
     Route: 048
     Dates: start: 20120221, end: 20130425

REACTIONS (1)
  - Myositis [None]
